FAERS Safety Report 7912242-9 (Version None)
Quarter: 2011Q4

REPORT INFORMATION
  Report Type: 
  Country: None (occurrence: None)
  Receive Date: 20111114
  Receipt Date: 20111110
  Transmission Date: 20120403
  Serious: Yes (Hospitalization, Disabling, Other)
  Sender: FDA-Public Use
  Company Number: US-MERCK-1104USA01933

PATIENT
  Age: 63 Year
  Sex: Female
  Weight: 84 kg

DRUGS (14)
  1. FOSAMAX [Suspect]
     Route: 048
     Dates: start: 19990325, end: 20101102
  2. ALENDRONATE SODIUM [Suspect]
     Indication: OSTEOPENIA
     Route: 048
     Dates: start: 20080805, end: 20100223
  3. VITAMINS (UNSPECIFIED) [Concomitant]
     Route: 065
  4. FOSAMAX [Suspect]
     Route: 048
     Dates: start: 20100417
  5. IRON (UNSPECIFIED) [Concomitant]
     Route: 065
  6. FOSAMAX [Suspect]
     Indication: OSTEOPOROSIS
     Route: 048
     Dates: start: 19991018
  7. FOSAMAX [Suspect]
     Route: 048
     Dates: start: 20100417
  8. FOSAMAX [Suspect]
     Route: 048
     Dates: start: 19990325, end: 20101102
  9. FOSAMAX [Suspect]
     Route: 048
     Dates: start: 20000101
  10. CALCIUM (UNSPECIFIED) [Concomitant]
     Route: 065
  11. FOSAMAX [Suspect]
     Indication: OSTEOPENIA
     Route: 048
     Dates: start: 19991018
  12. ALENDRONATE SODIUM [Suspect]
     Indication: OSTEOPOROSIS
     Route: 048
     Dates: start: 20080805, end: 20100223
  13. FOSAMAX [Suspect]
     Route: 048
     Dates: start: 20000101
  14. NEXIUM [Concomitant]
     Route: 065
     Dates: start: 19970101

REACTIONS (65)
  - WOUND INFECTION [None]
  - LUMBAR VERTEBRAL FRACTURE [None]
  - HIP FRACTURE [None]
  - ANXIETY [None]
  - INTERVERTEBRAL DISC DEGENERATION [None]
  - HYPONATRAEMIA [None]
  - HYPERTENSION [None]
  - WEIGHT INCREASED [None]
  - CARDIAC FAILURE CONGESTIVE [None]
  - INFLAMMATORY BOWEL DISEASE [None]
  - FUNGAL INFECTION [None]
  - FLANK PAIN [None]
  - CYSTOCELE [None]
  - FRACTURE DELAYED UNION [None]
  - BLOOD GLUCOSE INCREASED [None]
  - HYPERKALAEMIA [None]
  - CARDIAC MURMUR [None]
  - SPINAL OSTEOARTHRITIS [None]
  - HAEMATURIA [None]
  - CHEST PAIN [None]
  - DEEP VEIN THROMBOSIS [None]
  - FALL [None]
  - VIITH NERVE PARALYSIS [None]
  - CALCIUM DEFICIENCY [None]
  - MITRAL VALVE PROLAPSE [None]
  - CHRONIC SINUSITIS [None]
  - FEMUR FRACTURE [None]
  - ASTHENIA [None]
  - FRACTURE NONUNION [None]
  - OSTEOARTHRITIS [None]
  - HYPOCOAGULABLE STATE [None]
  - RENAL FUNCTION TEST ABNORMAL [None]
  - DIVERTICULITIS [None]
  - DEPRESSION [None]
  - GAMMA-GLUTAMYLTRANSFERASE INCREASED [None]
  - MUSCLE STRAIN [None]
  - RENAL FAILURE [None]
  - ARTHRALGIA [None]
  - ENTEROCOLITIS [None]
  - DYSPNOEA EXERTIONAL [None]
  - HYPOACUSIS [None]
  - GASTROOESOPHAGEAL REFLUX DISEASE [None]
  - GASTROINTESTINAL DISORDER [None]
  - CAROTID BRUIT [None]
  - ANAEMIA [None]
  - PELVIC FRACTURE [None]
  - BRONCHITIS [None]
  - HYPERTENSIVE HEART DISEASE [None]
  - HYPERLIPIDAEMIA [None]
  - VITAMIN D DEFICIENCY [None]
  - TRICUSPID VALVE INCOMPETENCE [None]
  - TOOTH DISORDER [None]
  - OSTEOGENESIS IMPERFECTA [None]
  - LIVER FUNCTION TEST ABNORMAL [None]
  - DIASTOLIC DYSFUNCTION [None]
  - DIARRHOEA [None]
  - HERPES ZOSTER [None]
  - CARPAL TUNNEL SYNDROME [None]
  - DEVICE FAILURE [None]
  - VAGINAL DISCHARGE [None]
  - SARCOIDOSIS [None]
  - SPONDYLOLISTHESIS [None]
  - LOW TURNOVER OSTEOPATHY [None]
  - CELLULITIS [None]
  - FATIGUE [None]
